FAERS Safety Report 25416956 (Version 1)
Quarter: 2025Q2

REPORT INFORMATION
  Report Type: Spontaneous
  Country: CN (occurrence: CN)
  Receive Date: 20250610
  Receipt Date: 20250610
  Transmission Date: 20250717
  Serious: Yes (Hospitalization, Other)
  Sender: SANDOZ
  Company Number: CN-002147023-NVSC2025CN091238

PATIENT
  Age: 66 Year
  Sex: Male

DRUGS (11)
  1. MYCOPHENOLATE SODIUM [Suspect]
     Active Substance: MYCOPHENOLATE SODIUM
     Indication: Immunosuppressant drug therapy
     Dosage: 360 MG, Q12H
     Route: 048
  2. PREDNISONE ACETATE [Suspect]
     Active Substance: PREDNISONE ACETATE
     Indication: Immunosuppressant drug therapy
     Dosage: 10 MG, QD
     Route: 048
  3. SULFAMETHOXAZOLE [Suspect]
     Active Substance: SULFAMETHOXAZOLE
     Indication: Prophylaxis
     Dosage: 1 DF, QD
     Route: 048
  4. TACROLIMUS [Suspect]
     Active Substance: TACROLIMUS
     Route: 048
  5. TACROLIMUS [Suspect]
     Active Substance: TACROLIMUS
     Indication: Immunosuppressant drug therapy
     Route: 048
  6. VORICONAZOLE [Suspect]
     Active Substance: VORICONAZOLE
     Indication: Aspergillus infection
     Route: 048
  7. Deuremidevir hydrobromide [Concomitant]
     Indication: SARS-CoV-2 test positive
     Dosage: 0.3 G, Q12H
     Route: 048
  8. RITONAVIR [Concomitant]
     Active Substance: RITONAVIR
     Dosage: 3 DF, Q12H
     Route: 048
  9. RITONAVIR [Concomitant]
     Active Substance: RITONAVIR
     Indication: SARS-CoV-2 test positive
     Route: 065
  10. SIMNOTRELVIR [Concomitant]
     Active Substance: SIMNOTRELVIR
     Dosage: 3 DF, Q12H
     Route: 048
  11. SIMNOTRELVIR [Concomitant]
     Active Substance: SIMNOTRELVIR
     Indication: SARS-CoV-2 test positive
     Route: 065

REACTIONS (6)
  - Chest discomfort [Unknown]
  - Tachypnoea [Recovering/Resolving]
  - Sputum increased [Recovering/Resolving]
  - Pyrexia [Unknown]
  - Productive cough [Recovering/Resolving]
  - Pneumonia [Unknown]
